FAERS Safety Report 17964249 (Version 1)
Quarter: 2020Q2

REPORT INFORMATION
  Report Type: Report from Study
  Country: US (occurrence: US)
  Receive Date: 20200630
  Receipt Date: 20200630
  Transmission Date: 20200714
  Serious: Yes (Other)
  Sender: FDA-Public Use
  Company Number: US-ACCORD-186083

PATIENT
  Age: 7 Year
  Sex: Female

DRUGS (6)
  1. MYCOPHENOLIC ACID. [Suspect]
     Active Substance: MYCOPHENOLIC ACID
     Indication: IMMUNOSUPPRESSION
     Dosage: ON DAY +5
  2. CYCLOPHOSPHAMIDE/CYCLOPHOSPHAMIDE MONOHYDRATE [Suspect]
     Active Substance: CYCLOPHOSPHAMIDE
     Indication: IMMUNOSUPPRESSION
     Dosage: ON DAY +4
     Route: 042
  3. TACROLIMUS. [Suspect]
     Active Substance: TACROLIMUS
     Indication: IMMUNOSUPPRESSION
     Dosage: ON DAY +5
  4. FLUDARABINE [Suspect]
     Active Substance: FLUDARABINE PHOSPHATE
     Indication: BONE MARROW CONDITIONING REGIMEN
     Dosage: ON DAYS -6 THROUGH -2 (TOTAL DOSE, 150 MG/M2)
     Route: 042
  5. FILGRASTIM/GRANULOCYTE COLONY STIMULATING/LENOGRASTIM [Concomitant]
     Active Substance: GRANULOCYTE COLONY-STIMULATING FACTOR NOS
     Indication: PROPHYLAXIS
     Dosage: 5 UG/KG/DAY ON DAY +5
     Route: 042
  6. CYCLOPHOSPHAMIDE/CYCLOPHOSPHAMIDE MONOHYDRATE [Suspect]
     Active Substance: CYCLOPHOSPHAMIDE
     Indication: BONE MARROW CONDITIONING REGIMEN
     Dosage: ON DAYS -6 AND -5 (TOTAL DOSE, 50 MG/KG)
     Route: 042

REACTIONS (7)
  - Herpes simplex [Unknown]
  - Nasal injury [Unknown]
  - Pancreatitis [Unknown]
  - Cytomegalovirus infection reactivation [Recovered/Resolved]
  - Polyomavirus viraemia [Unknown]
  - Colitis [Unknown]
  - Pneumonitis [Unknown]
